FAERS Safety Report 5947625-X (Version None)
Quarter: 2008Q4

REPORT INFORMATION
  Report Type: 
  Country: None (occurrence: None)
  Receive Date: 20081107
  Receipt Date: 20081028
  Transmission Date: 20090506
  Serious: Yes (Hospitalization, Other)
  Sender: FDA-Public Use
  Company Number: 08-001743

PATIENT
  Sex: Female

DRUGS (1)
  1. VITAMIN AND MINERAL PRENATAL SUPPLEMENT W/ FOLIC ACID CAP [Suspect]
     Dosage: QD, TRANSPLACENTAL
     Route: 064

REACTIONS (7)
  - FOETAL DISORDER [None]
  - HYDRONEPHROSIS [None]
  - IMPERFORATE HYMEN [None]
  - MATERNAL DRUGS AFFECTING FOETUS [None]
  - NEONATAL DISORDER [None]
  - RENAL INJURY [None]
  - UTERINE CYST [None]
